FAERS Safety Report 10534078 (Version 1)
Quarter: 2014Q4

REPORT INFORMATION
  Report Type: Spontaneous
  Country: ES (occurrence: ES)
  Receive Date: 20141022
  Receipt Date: 20141022
  Transmission Date: 20150529
  Serious: Yes (Other)
  Sender: FDA-Public Use
  Company Number: ES-TEVA-516769USA

PATIENT
  Age: 10 Year
  Sex: Female

DRUGS (1)
  1. WILZIN [Suspect]
     Active Substance: ZINC ACETATE
     Indication: HEPATO-LENTICULAR DEGENERATION
     Dosage: 75 MILLIGRAM DAILY;
     Route: 048
     Dates: start: 200706, end: 200801

REACTIONS (8)
  - Swelling face [Recovered/Resolved]
  - Peripheral swelling [None]
  - Asthenia [Recovered/Resolved]
  - Oedema peripheral [Recovered/Resolved]
  - Pyrexia [Recovered/Resolved]
  - Abdominal pain [Recovered/Resolved]
  - Dizziness [Recovered/Resolved]
  - Headache [Recovered/Resolved]

NARRATIVE: CASE EVENT DATE: 200801
